FAERS Safety Report 18648850 (Version 2)
Quarter: 2020Q4

REPORT INFORMATION
  Report Type: Spontaneous
  Country: CA (occurrence: CA)
  Receive Date: 20201222
  Receipt Date: 20201230
  Transmission Date: 20210114
  Serious: Yes (Life-Threatening, Other)
  Sender: FDA-Public Use
  Company Number: CA-PFIZER INC-2020500372

PATIENT
  Sex: Female

DRUGS (1)
  1. GENTAMICIN SULFATE. [Suspect]
     Active Substance: GENTAMICIN SULFATE
     Indication: KIDNEY INFECTION
     Dosage: UNK
     Route: 042

REACTIONS (8)
  - Paralysis [Unknown]
  - Swelling [Recovered/Resolved]
  - Pyrexia [Recovered/Resolved]
  - Hypoaesthesia [Recovered/Resolved]
  - Musculoskeletal stiffness [Recovered/Resolved]
  - Lethargy [Recovered/Resolved]
  - Hypokinesia [Recovered/Resolved]
  - Traumatic shock [Unknown]
